FAERS Safety Report 7214003-5 (Version None)
Quarter: 2011Q1

REPORT INFORMATION
  Report Type: 
  Country: None (occurrence: None)
  Receive Date: 20110107
  Receipt Date: 20110106
  Transmission Date: 20110831
  Serious: Yes (Hospitalization)
  Sender: FDA-Public Use
  Company Number: BE-BIOGENIDEC-2010BI032980

PATIENT
  Age: 47 Year
  Sex: Female

DRUGS (12)
  1. OMEPRAZOLE [Concomitant]
  2. TRITACE [Concomitant]
  3. EMCORETIC [Concomitant]
  4. SERLAIN [Concomitant]
  5. LIPITOR [Concomitant]
  6. AMANTADINE [Concomitant]
     Indication: FATIGUE
  7. TOLTERODINE TARTRATE [Concomitant]
  8. TYSABRI [Suspect]
     Indication: RELAPSING-REMITTING MULTIPLE SCLEROSIS
     Route: 042
     Dates: start: 20081021, end: 20100209
  9. SIFROL [Concomitant]
     Indication: RESTLESS LEGS SYNDROME
  10. TRAZOLAN [Concomitant]
  11. XANAX [Concomitant]
  12. ASAFLOW [Concomitant]

REACTIONS (1)
  - ACUTE MYOCARDIAL INFARCTION [None]
